FAERS Safety Report 12090931 (Version 4)
Quarter: 2016Q2

REPORT INFORMATION
  Report Type: Spontaneous
  Country: JP (occurrence: JP)
  Receive Date: 20160218
  Receipt Date: 20160415
  Transmission Date: 20160815
  Serious: Yes (Hospitalization)
  Sender: FDA-Public Use
  Company Number: JP-B.I. PHARMACEUTICALS,INC./RIDGEFIELD-2015-BI-69915NB

PATIENT
  Age: 64 Year
  Sex: Male
  Weight: 67.7 kg

DRUGS (4)
  1. LIMAS [Suspect]
     Active Substance: LITHIUM CARBONATE
     Dosage: 200 MG
     Route: 048
     Dates: start: 20150216
  2. LIMAS [Suspect]
     Active Substance: LITHIUM CARBONATE
     Dosage: 400 MG
     Route: 048
     Dates: start: 20150417
  3. MICARDIS [Suspect]
     Active Substance: TELMISARTAN
     Indication: HYPERTENSION
     Dosage: 20 MG
     Route: 048
  4. LIMAS [Suspect]
     Active Substance: LITHIUM CARBONATE
     Indication: BIPOLAR I DISORDER
     Dosage: 600 MG
     Route: 048
     Dates: end: 20150209

REACTIONS (3)
  - Cognitive disorder [Unknown]
  - Antipsychotic drug level increased [Recovered/Resolved]
  - Drug interaction [Unknown]

NARRATIVE: CASE EVENT DATE: 20150205
